FAERS Safety Report 8965482 (Version 1)
Quarter: 2012Q4

REPORT INFORMATION
  Report Type: Report from Study
  Country: JP (occurrence: JP)
  Receive Date: 20121213
  Receipt Date: 20121213
  Transmission Date: 20130627
  Serious: Yes (Other)
  Sender: FDA-Public Use
  Company Number: JP-ASTELLAS-2012JP005593

PATIENT
  Age: 35 Year
  Sex: Female

DRUGS (20)
  1. TACROLIMUS CAPSULES [Suspect]
     Indication: LUPUS NEPHRITIS
     Dosage: 3 mg, UID/QD
     Route: 048
     Dates: start: 20070713
  2. PREDNISOLONE [Concomitant]
     Indication: LUPUS NEPHRITIS
     Dosage: 20 mg, UID/QD
     Route: 048
     Dates: end: 20100708
  3. PREDNISOLONE [Concomitant]
     Dosage: 30 mg, Unknown/D
     Route: 048
     Dates: start: 20100709
  4. CELLCEPT                           /01275102/ [Concomitant]
     Indication: LUPUS NEPHRITIS
     Dosage: 750 mg, Unknown/D
     Route: 048
     Dates: end: 20071206
  5. CELLCEPT                           /01275102/ [Concomitant]
     Dosage: 250 mg, bid
     Route: 048
     Dates: start: 20071207
  6. ZYLORIC [Concomitant]
     Dosage: 75 mg, bid
     Route: 048
     Dates: end: 20100311
  7. TAKEPRON [Concomitant]
     Indication: PROPHYLAXIS
     Dosage: 15 mg, UID/QD
     Route: 048
     Dates: end: 20081009
  8. TAKEPRON [Concomitant]
     Dosage: 15 mg, bid
     Route: 048
     Dates: start: 20081010, end: 20100114
  9. MAINTATE [Concomitant]
     Dosage: 2.5 mg, UID/QD
     Route: 048
  10. MUCOSTA [Concomitant]
     Indication: PROPHYLAXIS
     Dosage: 100 mg, tid
     Route: 048
  11. BAKTAR [Concomitant]
     Indication: PROPHYLAXIS
     Dosage: 1 DF, bid
     Route: 048
  12. KINDAVATE [Concomitant]
     Indication: ARTHROPOD STING
     Dosage: UNK
     Route: 061
     Dates: start: 20081205, end: 20090205
  13. NAUZELIN [Concomitant]
     Indication: GASTROENTERITIS
     Dosage: UNK
     Route: 054
     Dates: start: 20090402, end: 20090407
  14. COCARL [Concomitant]
     Indication: GASTROENTERITIS
     Dosage: 400 mg, UID/QD
     Route: 048
     Dates: start: 20090402, end: 20090407
  15. NAUZELIN [Concomitant]
     Indication: GASTROENTERITIS
     Dosage: 10 mg, UID/QD
     Route: 048
     Dates: start: 20090402, end: 20090407
  16. SOLITA T                           /07473201/ [Concomitant]
     Indication: GASTROENTERITIS
     Dosage: UNK
     Route: 065
     Dates: start: 20090402, end: 20090402
  17. PRIMPERAN [Concomitant]
     Indication: GASTROENTERITIS
     Dosage: UNK
     Route: 065
     Dates: start: 20090402, end: 20090402
  18. FOSAMAC [Concomitant]
     Indication: PROPHYLAXIS
     Dosage: 35 mg, UID/QD
     Route: 048
     Dates: start: 20090605, end: 20090910
  19. PARIET [Concomitant]
     Indication: OESOPHAGEAL ULCER
     Dosage: 20 mg, Unknown/D
     Route: 048
     Dates: start: 20091109
  20. PROMAC                             /01312301/ [Concomitant]
     Indication: OESOPHAGEAL ULCER
     Dosage: 150 mg, Unknown/D
     Route: 048
     Dates: start: 20091109, end: 20091129

REACTIONS (6)
  - Gastroenteritis [Recovered/Resolved]
  - Arthropod sting [Recovered/Resolved]
  - Oesophageal ulcer [Recovering/Resolving]
  - Upper respiratory tract inflammation [Recovered/Resolved]
  - Bronchitis [Recovered/Resolved]
  - Pneumonia bacterial [Recovered/Resolved]
